FAERS Safety Report 18099266 (Version 2)
Quarter: 2020Q3

REPORT INFORMATION
  Report Type: Report from Study
  Country: CA (occurrence: CA)
  Receive Date: 20200731
  Receipt Date: 20200817
  Transmission Date: 20201103
  Serious: Yes (Other)
  Sender: FDA-Public Use
  Company Number: CA-ADVANZ PHARMA-202007007494

PATIENT

DRUGS (7)
  1. KEVZARA [Suspect]
     Active Substance: SARILUMAB
     Indication: RHEUMATOID ARTHRITIS
     Dosage: 200 MG, QOW, EVERY TWO WEEKS
     Route: 058
     Dates: start: 20200728
  2. KEVZARA [Suspect]
     Active Substance: SARILUMAB
     Dosage: 200 MG, QOW
     Route: 058
     Dates: start: 20190418, end: 2019
  3. KEVZARA [Suspect]
     Active Substance: SARILUMAB
     Dosage: 150 MG, QOW
     Route: 058
     Dates: start: 20190811
  4. PREDNISONE. [Concomitant]
     Active Substance: PREDNISONE
  5. HYDROXYCHLOROQUINE [Suspect]
     Active Substance: HYDROXYCHLOROQUINE
     Indication: PRODUCT USED FOR UNKNOWN INDICATION
     Route: 065
  6. KEVZARA [Suspect]
     Active Substance: SARILUMAB
     Dosage: 150 MG, Q10D
     Route: 058
  7. TECTA [Concomitant]
     Active Substance: PANTOPRAZOLE MAGNESIUM

REACTIONS (8)
  - Disturbance in attention [Unknown]
  - Rheumatoid arthritis [Unknown]
  - Headache [Recovered/Resolved]
  - Off label use [Unknown]
  - Agitation [Unknown]
  - Stress [Unknown]
  - Visual impairment [Unknown]
  - Drug ineffective [Unknown]

NARRATIVE: CASE EVENT DATE: 20190811
